FAERS Safety Report 14707328 (Version 1)
Quarter: 2018Q2

REPORT INFORMATION
  Report Type: Spontaneous
  Country: US (occurrence: US)
  Receive Date: 20180403
  Receipt Date: 20180403
  Transmission Date: 20180711
  Serious: Yes (Death)
  Sender: FDA-Public Use
  Company Number: US-BIOCOMPATIBLES UK LTD-2018BTG01593

PATIENT
  Age: 55 Year
  Sex: Male

DRUGS (1)
  1. CROFAB [Suspect]
     Active Substance: CROTALIDAE POLYVALENT IMMUNE FAB (OVINE)
     Indication: SNAKE BITE
     Dosage: UNK
     Dates: start: 2004

REACTIONS (3)
  - Renal failure [Fatal]
  - Disseminated intravascular coagulation [Fatal]
  - Circulatory collapse [Fatal]

NARRATIVE: CASE EVENT DATE: 2004
